FAERS Safety Report 6332399-3 (Version None)
Quarter: 2009Q3

REPORT INFORMATION
  Report Type: 
  Country: None (occurrence: None)
  Receive Date: 20090827
  Receipt Date: 20090827
  Transmission Date: 20100115
  Serious: No
  Sender: FDA-Public Use
  Company Number: None

PATIENT
  Age: 66 Year
  Sex: Male

DRUGS (1)
  1. NITROGLYCERIN [Suspect]
     Indication: CHEST PAIN
     Dosage: 1 TABLET Q 5 MIN UP TO 3 PO
     Route: 048
     Dates: start: 20090302, end: 20090826

REACTIONS (1)
  - DRUG INEFFECTIVE [None]
